FAERS Safety Report 25659145 (Version 1)
Quarter: 2025Q3

REPORT INFORMATION
  Report Type: Spontaneous
  Country: US (occurrence: None)
  Receive Date: 20250807
  Receipt Date: 20250807
  Transmission Date: 20251020
  Serious: No
  Sender: FDA-CTU
  Company Number: None

PATIENT
  Age: 53 Year
  Sex: Female

DRUGS (11)
  1. COSENTYX [Suspect]
     Active Substance: SECUKINUMAB
     Indication: Psoriatic arthropathy
     Dosage: FREQUENCY : WEEKLY;?
     Route: 058
     Dates: start: 20250703
  2. GABAPENTIN [Concomitant]
     Active Substance: GABAPENTIN
  3. METFORMIN [Concomitant]
     Active Substance: METFORMIN HYDROCHLORIDE
  4. METOPROLOL SUCCINATE [Concomitant]
     Active Substance: METOPROLOL SUCCINATE
  5. OXYBUTYNIN [Concomitant]
     Active Substance: OXYBUTYNIN
  6. PRAVASTATIN [Concomitant]
     Active Substance: PRAVASTATIN
  7. SPIRONOLACTONE [Concomitant]
     Active Substance: SPIRONOLACTONE
  8. SUMATRIPTAN [Concomitant]
     Active Substance: SUMATRIPTAN
  9. MELOXICAM [Concomitant]
     Active Substance: MELOXICAM
  10. TOPAMAX [Concomitant]
     Active Substance: TOPIRAMATE
  11. PRISTIQ EXTENDED-RELEASE [Concomitant]
     Active Substance: DESVENLAFAXINE SUCCINATE

REACTIONS (1)
  - Rash vesicular [None]

NARRATIVE: CASE EVENT DATE: 20250710
